FAERS Safety Report 19181771 (Version 1)
Quarter: 2021Q2

REPORT INFORMATION
  Report Type: Report from Study
  Country: US (occurrence: US)
  Receive Date: 20210426
  Receipt Date: 20210426
  Transmission Date: 20210717
  Serious: Yes (Other)
  Sender: FDA-Public Use
  Company Number: US-UCBSA-2021017684

PATIENT
  Age: 2 Year
  Sex: Female
  Weight: 3085 kg

DRUGS (17)
  1. AMOXICILLIN. [Concomitant]
     Active Substance: AMOXICILLIN
     Indication: BRONCHITIS
     Dosage: UNK
     Dates: start: 20161126, end: 20161202
  2. CERTOLIZUMAB PEGOL RA [Suspect]
     Active Substance: CERTOLIZUMAB PEGOL
     Indication: PSORIASIS
     Dosage: 400 MILLIGRAM, MONTHLY (QM)
     Route: 064
     Dates: start: 20160605, end: 20170226
  3. GAS?X [Concomitant]
     Active Substance: DIMETHICONE
     Dosage: 125 MILLIGRAM, WEEKLY (QW)
     Route: 064
     Dates: start: 20161118, end: 20161209
  4. CLARITIN [Concomitant]
     Active Substance: LORATADINE
     Indication: BRONCHITIS
     Dosage: 5 DOSAGE FORM
     Route: 064
     Dates: start: 20161219, end: 20170112
  5. TDAP [Concomitant]
     Active Substance: TETANUS TOXOID, REDUCED DIPHTHERIA TOXOID AND ACELLULAR PERTUSSIS VACCINE ADSORBED, TDAP
     Indication: PRODUCT USED FOR UNKNOWN INDICATION
     Dosage: UNK
     Route: 064
     Dates: start: 20161212, end: 20161212
  6. PRENATAL VITAMINS [MINERALS NOS;VITAMINS NOS] [Concomitant]
     Active Substance: MINERALS\VITAMINS
     Indication: PRODUCT USED FOR UNKNOWN INDICATION
     Dosage: 1 DOSAGE FORM, ONCE DAILY (QD)
     Route: 064
     Dates: start: 20160521, end: 20170310
  7. ZITHROMAX [Concomitant]
     Active Substance: AZITHROMYCIN DIHYDRATE
     Indication: NASOPHARYNGITIS
     Dosage: 1 DOSAGE FORM, ONCE DAILY (QD)
     Route: 064
     Dates: start: 20161230, end: 20170102
  8. ZITHROMAX [Concomitant]
     Active Substance: AZITHROMYCIN DIHYDRATE
     Dosage: 1 DOSAGE FORM, ONCE DAILY (QD)
     Route: 064
     Dates: start: 20170202, end: 20170205
  9. CERTOLIZUMAB PEGOL RA [Suspect]
     Active Substance: CERTOLIZUMAB PEGOL
     Indication: PSORIATIC ARTHROPATHY
  10. GAS?X [Concomitant]
     Active Substance: DIMETHICONE
     Indication: FLATULENCE
     Dosage: 125 MILLIGRAM
     Route: 064
     Dates: start: 20160521, end: 20161117
  11. TUMS [Concomitant]
     Active Substance: CALCIUM CARBONATE
     Indication: GASTROOESOPHAGEAL REFLUX DISEASE
     Dosage: 2 DOSAGE FORM 3 WEEKLY
     Route: 064
     Dates: start: 20161111, end: 20170310
  12. SUDAFED [XYLOMETAZOLINE HYDROCHLORIDE] [Concomitant]
     Active Substance: XYLOMETAZOLINE HYDROCHLORIDE
     Indication: BRONCHITIS
     Dosage: 5 DOSAGE FORM
     Route: 064
     Dates: start: 20161126, end: 20161210
  13. ZITHROMAX [Concomitant]
     Active Substance: AZITHROMYCIN DIHYDRATE
     Indication: BRONCHITIS
     Dosage: 2 DOSAGE FORM, ONCE DAILY (QD)
     Route: 064
     Dates: start: 20161229, end: 20161229
  14. FLUZONE [INFLUENZA VACCINE] [Concomitant]
     Indication: INFLUENZA
     Dosage: 1 DOSAGE FORM
     Route: 064
     Dates: start: 20160916, end: 20160916
  15. GAS?X [Concomitant]
     Active Substance: DIMETHICONE
     Dosage: 125 MILLIGRAM 4.5 WEEKLY
     Route: 064
     Dates: start: 20161112, end: 20170310
  16. TYLENOL [Concomitant]
     Active Substance: ACETAMINOPHEN
     Indication: HEADACHE
     Dosage: 1000 MILLIGRAM, 2X/MONTH
     Route: 064
     Dates: start: 20160521, end: 20170310
  17. ZITHROMAX [Concomitant]
     Active Substance: AZITHROMYCIN DIHYDRATE
     Dosage: 2 DOSAGE FORM, ONCE DAILY (QD)
     Route: 064
     Dates: start: 20170201, end: 20170201

REACTIONS (2)
  - Deafness [Unknown]
  - Maternal exposure before pregnancy [Unknown]

NARRATIVE: CASE EVENT DATE: 20160605
